FAERS Safety Report 24197741 (Version 1)
Quarter: 2024Q3

REPORT INFORMATION
  Report Type: Spontaneous
  Country: US (occurrence: US)
  Receive Date: 20240811
  Receipt Date: 20240811
  Transmission Date: 20241016
  Serious: No
  Sender: ROCHE
  Company Number: US-ROCHE-10000050572

PATIENT
  Age: 64 Year
  Sex: Female
  Weight: 68.22 kg

DRUGS (2)
  1. GAZYVA [Suspect]
     Active Substance: OBINUTUZUMAB
     Indication: Chronic lymphocytic leukaemia
     Dosage: DAY-1 DOSE 100MG AND A WEEK LATER 900MG DOSE
     Route: 042
     Dates: start: 20240710
  2. GAZYVA [Suspect]
     Active Substance: OBINUTUZUMAB
     Dosage: DAY-1 DOSE 100MG AND A WEEK LATER 900MG DOSE
     Route: 042
     Dates: end: 20240717

REACTIONS (3)
  - Dyspnoea [Unknown]
  - Chest discomfort [Unknown]
  - Blood pressure increased [Unknown]

NARRATIVE: CASE EVENT DATE: 20240710
